FAERS Safety Report 9224188 (Version 1)
Quarter: 2013Q1

REPORT INFORMATION
  Report Type: Spontaneous
  Country: US (occurrence: US)
  Receive Date: 20120914
  Receipt Date: 20120914
  Transmission Date: 20140127
  Serious: No
  Sender: FDA-Public Use
  Company Number: JPI-P-018207

PATIENT
  Age: 51 Year
  Sex: Female
  Weight: 60.78 kg

DRUGS (9)
  1. XYREM (500 MG/ML SOLUTION)(SODIUM OXYBATE) [Suspect]
     Indication: HYPERSOMNIA
     Route: 048
     Dates: start: 20110920, end: 2011
  2. PROVIGIL (MODAFINIL) [Concomitant]
  3. CYMBALTA [Concomitant]
  4. CLARITIN [Concomitant]
  5. CLARITIN (LORATADINE) [Concomitant]
  6. MULTIVITAMINS [Concomitant]
  7. OMEPRAZOLE [Concomitant]
  8. ADVAIR (FLUTICASONE PROPIONATE AND SALMETEROL) [Concomitant]
  9. PULMICORT (BUDESONIDE) [Concomitant]

REACTIONS (3)
  - Weight decreased [None]
  - Nausea [None]
  - Vomiting [None]
